FAERS Safety Report 4340082-9 (Version None)
Quarter: 2004Q2

REPORT INFORMATION
  Report Type: 
  Country: None (occurrence: None)
  Receive Date: 20040412
  Receipt Date: 20040329
  Transmission Date: 20050107
  Serious: Yes (Hospitalization)
  Sender: FDA-Public Use
  Company Number: 2004CG00622

PATIENT
  Age: 0 Day
  Sex: Male
  Weight: 3 kg

DRUGS (3)
  1. MARCAINE [Suspect]
     Indication: SPINAL ANAESTHESIA
     Dosage: 10 MG ONE TPL
     Route: 064
     Dates: start: 20040227, end: 20040227
  2. SUFENTA [Suspect]
     Indication: SPINAL ANAESTHESIA
     Dosage: 2.5 UG ONCE TPL
     Route: 064
     Dates: start: 20040227, end: 20040227
  3. ATARAX [Suspect]
     Indication: PRURITUS
     Dosage: 25 MG DAILY TPL
     Route: 064
     Dates: start: 20040224, end: 20040225

REACTIONS (3)
  - MATERNAL DRUGS AFFECTING FOETUS [None]
  - NEONATAL APNOEIC ATTACK [None]
  - NERVOUS SYSTEM DISORDER [None]
